FAERS Safety Report 9347020 (Version 3)
Quarter: 2013Q3

REPORT INFORMATION
  Report Type: Spontaneous
  Country: US (occurrence: US)
  Receive Date: 20130613
  Receipt Date: 20130725
  Transmission Date: 20140515
  Serious: Yes (Hospitalization, Other)
  Sender: FDA-Public Use
  Company Number: US-009507513-1306USA005072

PATIENT
  Age: 50 Year
  Sex: Female
  Weight: 60.32 kg

DRUGS (2)
  1. PEGINTRON [Suspect]
     Indication: HEPATITIS C
     Dosage: 120 MICROGRAM, QW, GIVEN ONE TIME
     Route: 058
     Dates: start: 20130527, end: 20130527
  2. REBETOL [Suspect]
     Indication: HEPATITIS C
     Dosage: UNK
     Route: 048
     Dates: start: 20130527, end: 20130527

REACTIONS (6)
  - Loss of consciousness [Unknown]
  - Nausea [Recovered/Resolved]
  - Vomiting [Recovered/Resolved]
  - Respiratory disorder [Unknown]
  - Chills [Unknown]
  - Abdominal distension [Unknown]
